FAERS Safety Report 11247362 (Version 3)
Quarter: 2015Q3

REPORT INFORMATION
  Report Type: Spontaneous
  Country: PL (occurrence: PL)
  Receive Date: 20150708
  Receipt Date: 20150729
  Transmission Date: 20151125
  Serious: Yes (Other)
  Sender: FDA-Public Use
  Company Number: PL-PFIZER INC-2015220499

PATIENT
  Age: 7 Week
  Sex: Male

DRUGS (2)
  1. GLUCOSE 10% [Suspect]
     Active Substance: DEXTROSE
     Dosage: UNK
     Route: 042
  2. TAZOCIN [Suspect]
     Active Substance: PIPERACILLIN SODIUM\TAZOBACTAM SODIUM
     Dosage: UNK
     Route: 042

REACTIONS (2)
  - Inflammation [Unknown]
  - Injection site necrosis [Unknown]

NARRATIVE: CASE EVENT DATE: 20150206
